FAERS Safety Report 6834575-X (Version None)
Quarter: 2010Q3

REPORT INFORMATION
  Report Type: 
  Country: None (occurrence: None)
  Receive Date: 20100712
  Receipt Date: 20070605
  Transmission Date: 20110219
  Serious: No
  Sender: FDA-Public Use
  Company Number: US-PFIZER INC-2007030512

PATIENT
  Sex: Male
  Weight: 86.18 kg

DRUGS (9)
  1. CHANTIX [Suspect]
     Indication: SMOKING CESSATION THERAPY
     Dates: start: 20070406
  2. ANALGESICS [Interacting]
     Indication: PAIN
  3. HYDROMORPHONE [Concomitant]
     Dosage: 6 EVERY 1 DAYS
  4. OXYCODONE HCL [Concomitant]
  5. DIAZEPAM [Concomitant]
  6. ALPRAZOLAM [Concomitant]
  7. LEXAPRO [Concomitant]
  8. ZETIA [Concomitant]
     Indication: BLOOD CHOLESTEROL INCREASED
  9. METHOCARBAMOL [Concomitant]

REACTIONS (3)
  - DRUG INTERACTION [None]
  - HEADACHE [None]
  - PAIN [None]
